FAERS Safety Report 16411374 (Version 3)
Quarter: 2021Q2

REPORT INFORMATION
  Report Type: Spontaneous
  Country: JP (occurrence: JP)
  Receive Date: 20190610
  Receipt Date: 20210624
  Transmission Date: 20210716
  Serious: Yes (Other)
  Sender: FDA-Public Use
  Company Number: JP-UCBSA-2019024025

PATIENT
  Age: 0 Year
  Sex: Male
  Weight: 2.35 kg

DRUGS (4)
  1. CIMZIA [Suspect]
     Active Substance: CERTOLIZUMAB PEGOL
     Indication: RHEUMATOID ARTHRITIS
     Dosage: 400 MILLIGRAM
     Route: 064
     Dates: start: 2017, end: 20180103
  2. PROGRAF [Concomitant]
     Active Substance: TACROLIMUS
     Indication: RHEUMATOID ARTHRITIS
     Dosage: 3 MILLIGRAM, ONCE DAILY (QD)
     Route: 064
     Dates: start: 20130825
  3. PROGRAF [Concomitant]
     Active Substance: TACROLIMUS
     Dosage: DOSE REDUCED
     Route: 064
  4. AZULFIDINE EN?TABS [Concomitant]
     Active Substance: SULFASALAZINE
     Indication: RHEUMATOID ARTHRITIS
     Dosage: 500 MILLIGRAM, EVERY 12 HOURS
     Route: 064
     Dates: start: 20130825

REACTIONS (3)
  - Low birth weight baby [Recovered/Resolved]
  - Maternal exposure before pregnancy [Unknown]
  - Maternal exposure during pregnancy [Unknown]

NARRATIVE: CASE EVENT DATE: 2017
